FAERS Safety Report 8804623 (Version 1)
Quarter: 2012Q4

REPORT INFORMATION
  Report Type: 
  Country: US (occurrence: US)
  Receive Date: 20120924
  Receipt Date: 20120924
  Transmission Date: 20130627
  Serious: Yes (Other)
  Sender: FDA-Public Use
  Company Number: US-ROCHE-1103500

PATIENT
  Sex: Female

DRUGS (1)
  1. AVASTIN [Suspect]
     Indication: RENAL CANCER
     Route: 065
     Dates: start: 200505, end: 20050518

REACTIONS (5)
  - Asthenia [Unknown]
  - Decreased appetite [Unknown]
  - Haematuria [Unknown]
  - Vomiting [Unknown]
  - Fatigue [Unknown]
